FAERS Safety Report 7206751-8 (Version None)
Quarter: 2010Q4

REPORT INFORMATION
  Report Type: 
  Country: None (occurrence: None)
  Receive Date: 20101217
  Receipt Date: 20101201
  Transmission Date: 20110411
  Serious: Yes (Hospitalization)
  Sender: FDA-Public Use
  Company Number: 1000017096

PATIENT
  Age: 82 Year
  Sex: Female
  Weight: 69 kg

DRUGS (9)
  1. MEMANTINE [Suspect]
     Indication: DEMENTIA ALZHEIMER'S TYPE
     Dosage: 20 MG (10 MG, 2 IN 1 D) ORAL; 20 MG (20 MG, 1 IN 1 D) ORAL
     Route: 048
     Dates: start: 20070201, end: 20101001
  2. MEMANTINE [Suspect]
     Indication: DEMENTIA ALZHEIMER'S TYPE
     Dosage: 20 MG (10 MG, 2 IN 1 D) ORAL; 20 MG (20 MG, 1 IN 1 D) ORAL
     Route: 048
     Dates: start: 20101025
  3. MEMANTINE [Suspect]
     Indication: DEMENTIA ALZHEIMER'S TYPE
     Dosage: 200 MG (100 MG, 2 IN 1 D) ORAL
     Route: 048
     Dates: start: 20101001, end: 20101025
  4. CIPRALEX (ESCITALOPRAM OXALATE) [Concomitant]
  5. ASPIRIN [Concomitant]
  6. DIGOXIN [Concomitant]
  7. RAMIPRIL [Concomitant]
  8. AMLODIPINE [Concomitant]
  9. LACTULOSE [Concomitant]

REACTIONS (3)
  - ACCIDENTAL OVERDOSE [None]
  - SEDATION [None]
  - WRONG TECHNIQUE IN DRUG USAGE PROCESS [None]
